FAERS Safety Report 15627673 (Version 6)
Quarter: 2019Q1

REPORT INFORMATION
  Report Type: Spontaneous
  Country: AU (occurrence: AU)
  Receive Date: 20181116
  Receipt Date: 20190325
  Transmission Date: 20190417
  Serious: Yes (Hospitalization, Other)
  Sender: FDA-Public Use
  Company Number: AU-PFIZER INC-2018465585

PATIENT
  Age: 75 Year
  Sex: Male

DRUGS (17)
  1. PRISTIQ EXTENDED-RELEASE [Suspect]
     Active Substance: DESVENLAFAXINE SUCCINATE
     Indication: DEPRESSION
     Dosage: 50 MG, UNK
     Route: 048
     Dates: start: 201806, end: 2018
  2. MIRTAZAPINE. [Concomitant]
     Active Substance: MIRTAZAPINE
     Dosage: 90 MG, DAILY
     Dates: start: 200801
  3. CALTRATE WITH VITAMIN D [Concomitant]
     Active Substance: CALCIUM CARBONATE\CHOLECALCIFEROL
     Dosage: UNK
  4. COLOXYL [DOCUSATE SODIUM] [Concomitant]
     Dosage: UNK
  5. GLUCOSAMINE [Concomitant]
     Active Substance: GLUCOSAMINE
     Dosage: UNK
  6. MAGNESIUM [Concomitant]
     Active Substance: MAGNESIUM
     Dosage: UNK (UP TO 6 A DAY)
  7. SINEMET [Concomitant]
     Active Substance: CARBIDOPA\LEVODOPA
     Indication: PARKINSON^S DISEASE
     Dosage: 15 MG, THRICE DAILY
  8. SEREPAX [Concomitant]
     Active Substance: OXAZEPAM
     Dosage: UNK, ONCE DAILY (AT NIGHT)
  9. TEMAZEPAM. [Concomitant]
     Active Substance: TEMAZEPAM
     Indication: SLEEP DISORDER
     Dosage: UNK
  10. SPIRONOLACTONE. [Concomitant]
     Active Substance: SPIRONOLACTONE
     Dosage: 100 MG, UNK (ONCE OR TWICE A DAY)
  11. PRISTIQ EXTENDED-RELEASE [Suspect]
     Active Substance: DESVENLAFAXINE SUCCINATE
     Dosage: 100 MG, DAILY
     Route: 048
     Dates: start: 201811
  12. PRISTIQ EXTENDED-RELEASE [Suspect]
     Active Substance: DESVENLAFAXINE SUCCINATE
     Indication: ANXIETY
     Dosage: 100 MG, UNK
     Route: 048
     Dates: start: 201807, end: 2018
  13. PRISTIQ EXTENDED-RELEASE [Suspect]
     Active Substance: DESVENLAFAXINE SUCCINATE
     Dosage: 200 MG, UNK
     Route: 048
     Dates: start: 201810, end: 2018
  14. MADOPAR RAPID [Concomitant]
     Dosage: UNK
  15. PROBANTHINE [Concomitant]
     Indication: MICTURITION DISORDER
     Dosage: 15 MG, THRICE DAILY
  16. COMTAM [Concomitant]
     Dosage: UNK
  17. VALIUM [Concomitant]
     Active Substance: DIAZEPAM
     Dosage: 20 MG, DAILY

REACTIONS (10)
  - Fall [Not Recovered/Not Resolved]
  - Hyperhidrosis [Unknown]
  - Thirst [Unknown]
  - Hallucination [Unknown]
  - Salt craving [Unknown]
  - Abnormal dreams [Unknown]
  - Parkinson^s disease [Unknown]
  - Condition aggravated [Unknown]
  - Schizophrenia [Unknown]
  - Thinking abnormal [Unknown]

NARRATIVE: CASE EVENT DATE: 201810
